FAERS Safety Report 19086680 (Version 3)
Quarter: 2021Q2

REPORT INFORMATION
  Report Type: Spontaneous
  Country: JP (occurrence: JP)
  Receive Date: 20210402
  Receipt Date: 20210413
  Transmission Date: 20210717
  Serious: No
  Sender: FDA-Public Use
  Company Number: JP-ASTRAZENECA-2021A136357

PATIENT
  Age: 64 Year
  Sex: Female

DRUGS (10)
  1. FEBURIC [Concomitant]
     Active Substance: FEBUXOSTAT
     Route: 065
  2. NIFEDIPINE CR [Concomitant]
     Active Substance: NIFEDIPINE
     Dosage: TWO TIMES A DAY
     Route: 065
  3. TAGRISSO [Suspect]
     Active Substance: OSIMERTINIB
     Indication: NON-SMALL CELL LUNG CANCER
     Route: 048
  4. TAGRISSO [Suspect]
     Active Substance: OSIMERTINIB
     Indication: NON-SMALL CELL LUNG CANCER
     Route: 048
     Dates: start: 20191210, end: 20201208
  5. FERRIC AMMONIUM CITRATE [Concomitant]
     Active Substance: FERRIC AMMONIUM CITRATE
     Route: 065
  6. PROPETO [Concomitant]
     Active Substance: PETROLATUM
     Route: 065
  7. THYRADIN?S [Concomitant]
     Active Substance: LEVOTHYROXINE
     Route: 048
  8. ALESION [Concomitant]
     Active Substance: EPINASTINE HYDROCHLORIDE
     Route: 065
  9. ANTEBATE:OINTMENT [Concomitant]
     Route: 062
  10. WARFARIN [Concomitant]
     Active Substance: WARFARIN
     Route: 065

REACTIONS (3)
  - Renal impairment [Recovering/Resolving]
  - Blood creatine phosphokinase increased [Recovered/Resolved]
  - Off label use [Unknown]

NARRATIVE: CASE EVENT DATE: 20200602
